FAERS Safety Report 8004115-0 (Version None)
Quarter: 2011Q4

REPORT INFORMATION
  Report Type: 
  Country: None (occurrence: None)
  Receive Date: 20111222
  Receipt Date: 20111212
  Transmission Date: 20120403
  Serious: Yes (Other)
  Sender: FDA-Public Use
  Company Number: US-ASTRAZENECA-2011SE66735

PATIENT
  Age: 48 Year
  Sex: Female

DRUGS (3)
  1. NEXIUM [Suspect]
     Route: 048
  2. CRESTOR [Suspect]
     Route: 048
  3. ANTIBIOTICS [Suspect]
     Route: 065

REACTIONS (4)
  - OESOPHAGEAL DISORDER [None]
  - HEARING IMPAIRED [None]
  - MENINGITIS [None]
  - MALAISE [None]
